FAERS Safety Report 7634324-1 (Version None)
Quarter: 2011Q3

REPORT INFORMATION
  Report Type: 
  Country: None (occurrence: None)
  Receive Date: 20110725
  Receipt Date: 20110720
  Transmission Date: 20111222
  Serious: Yes (Other)
  Sender: FDA-Public Use
  Company Number: JP-PFIZER INC-2011164892

PATIENT
  Age: 93 Year
  Sex: Female

DRUGS (8)
  1. TENORMIN [Concomitant]
     Dosage: 12.5 MG DAILY
     Route: 048
  2. METHYCOBAL [Concomitant]
     Dosage: 1500 MG DAILY
     Route: 048
  3. BROTIZOLAM [Concomitant]
     Dosage: 0.25 MG DAILY
     Route: 048
  4. OMEPRAZOLE [Concomitant]
     Dosage: 10 MG DAILY
     Route: 048
  5. AMITRIPTYLINE HCL [Concomitant]
     Dosage: 20 MG DAILY
     Route: 048
  6. MUCOSTA [Concomitant]
     Dosage: 300 MG DAILY
     Route: 048
  7. LYRICA [Suspect]
     Dosage: 150 MG, DAILY
     Route: 048
     Dates: start: 20110527, end: 20110621
  8. PURSENNID [Concomitant]
     Dosage: 24 MG DAILY
     Route: 048

REACTIONS (2)
  - COGNITIVE DISORDER [None]
  - DEMENTIA [None]
